FAERS Safety Report 9555247 (Version 1)
Quarter: 2013Q3

REPORT INFORMATION
  Report Type: Spontaneous
  Country: US (occurrence: None)
  Receive Date: 20130805
  Receipt Date: 20130805
  Transmission Date: 20140515
  Serious: Yes (Other)
  Sender: FDA-Public Use
  Company Number: OPCR20130183

PATIENT
  Sex: Female
  Weight: 108.86 kg

DRUGS (1)
  1. OPANA ER 20MG (OXYMORPHONE HYDROCHLORIDE) (40 MILLIGRAM, TABLETS) (OXYMORPHONE HYDROCHLORIDE) [Suspect]
     Indication: PRODUCT USED FOR UNKNOWN INDICATION
     Route: 048
     Dates: start: 2012, end: 2012

REACTIONS (1)
  - Hypersensitivity [None]
